FAERS Safety Report 8812149 (Version 2)
Quarter: 2014Q3

REPORT INFORMATION
  Report Type: Report from Study
  Country: US (occurrence: US)
  Receive Date: 20120927
  Receipt Date: 20140828
  Transmission Date: 20150326
  Serious: Yes (Other)
  Sender: FDA-Public Use
  Company Number: US-ROCHE-1128227

PATIENT
  Sex: Female
  Weight: 60 kg

DRUGS (5)
  1. HERCEPTIN [Suspect]
     Active Substance: TRASTUZUMAB
     Indication: PRODUCT USED FOR UNKNOWN INDICATION
     Route: 042
  2. AVASTIN [Suspect]
     Active Substance: BEVACIZUMAB
     Indication: BREAST CANCER FEMALE
     Route: 042
  3. NAVELBINE [Concomitant]
     Active Substance: VINORELBINE TARTRATE
  4. EPIRUBICIN [Concomitant]
     Active Substance: EPIRUBICIN
  5. AVASTIN [Suspect]
     Active Substance: BEVACIZUMAB
     Indication: BREAST CANCER METASTATIC

REACTIONS (7)
  - Metastases to bone [Unknown]
  - Pleural effusion [Unknown]
  - Dyspnoea [Unknown]
  - Performance status decreased [Unknown]
  - Off label use [Unknown]
  - Disease progression [Unknown]
  - Tumour marker increased [Unknown]
